FAERS Safety Report 24012969 (Version 1)
Quarter: 2024Q2

REPORT INFORMATION
  Report Type: Spontaneous
  Country: FR (occurrence: FR)
  Receive Date: 20240626
  Receipt Date: 20240626
  Transmission Date: 20240715
  Serious: Yes (Hospitalization, Other)
  Sender: FDA-Public Use
  Company Number: FR-AFSSAPS-PP2024000664

PATIENT
  Age: 68 Year
  Sex: Male
  Weight: 122.5 kg

DRUGS (8)
  1. BUDESONIDE [Suspect]
     Active Substance: BUDESONIDE
     Indication: Cardiovascular event prophylaxis
     Dosage: 1 MILLIGRAM, ONCE A DAY (1 MG/ 4 FOIS PAR JOUR)
     Dates: start: 20240426
  2. NICARDIPINE [Suspect]
     Active Substance: NICARDIPINE
     Indication: Hypertension
     Dosage: 50 MILLIGRAM, ONCE A DAY
     Route: 042
     Dates: start: 20240426
  3. ALBUTEROL SULFATE [Suspect]
     Active Substance: ALBUTEROL SULFATE
     Indication: Bronchiectasis
     Dosage: 10 MILLIGRAM, ONCE A DAY (2.5 MG/ 4 FOIS PAR JOUR)
     Dates: start: 20240426
  4. ATORVASTATIN CALCIUM [Suspect]
     Active Substance: ATORVASTATIN CALCIUM
     Indication: Dyslipidaemia
     Dosage: 40 MILLIGRAM, ONCE A DAY (1 CP /J)
     Route: 048
     Dates: start: 20240425
  5. BISOPROLOL FUMARATE [Suspect]
     Active Substance: BISOPROLOL FUMARATE
     Indication: Cardiovascular event prophylaxis
     Dosage: 2.5 MILLIGRAM, ONCE A DAY (2.5 MG/J)
     Route: 048
     Dates: start: 20240425
  6. FUROSEMIDE [Suspect]
     Active Substance: FUROSEMIDE
     Indication: Cardiovascular event prophylaxis
     Dosage: 240 MILLIGRAM, ONCE A DAY (240 MG /J)
     Route: 042
     Dates: start: 20240426
  7. IOMERON [Suspect]
     Active Substance: IOMEPROL
     Indication: Angiocardiogram
     Dosage: 120 MILLILITER, ONCE A DAY
     Route: 042
     Dates: start: 20240426, end: 20240426
  8. KARDEGIC [Suspect]
     Active Substance: ASPIRIN DL-LYSINE
     Indication: Cardiovascular event prophylaxis
     Dosage: 75 MILLIGRAM, ONCE A DAY (75 MG /J)
     Route: 048
     Dates: start: 20240425

REACTIONS (3)
  - Hepatic cytolysis [Not Recovered/Not Resolved]
  - Jaundice cholestatic [Not Recovered/Not Resolved]
  - Eosinophilia [Not Recovered/Not Resolved]

NARRATIVE: CASE EVENT DATE: 20240501
